FAERS Safety Report 5687201-X (Version None)
Quarter: 2008Q1

REPORT INFORMATION
  Report Type: 
  Country: None (occurrence: None)
  Receive Date: 20080328
  Receipt Date: 20070425
  Transmission Date: 20080703
  Serious: No
  Sender: FDA-Public Use
  Company Number: US-BAYER-US-2007-015550

PATIENT
  Age: 33 Year
  Sex: Female
  Weight: 59 kg

DRUGS (1)
  1. MIRENA [Suspect]
     Indication: CONTRACEPTION
     Route: 015
     Dates: start: 20060401, end: 20070131

REACTIONS (16)
  - ABDOMINAL DISTENSION [None]
  - ABDOMINAL PAIN [None]
  - ACNE [None]
  - ANXIETY [None]
  - ARTHRALGIA [None]
  - BACK PAIN [None]
  - DEPRESSION [None]
  - FATIGUE [None]
  - MENORRHAGIA [None]
  - MOOD SWINGS [None]
  - NERVOUSNESS [None]
  - PAIN IN JAW [None]
  - PALPITATIONS [None]
  - VAGINAL DISCHARGE [None]
  - VAGINAL HAEMORRHAGE [None]
  - WEIGHT DECREASED [None]
